FAERS Safety Report 9239478 (Version 1)
Quarter: 2013Q2

REPORT INFORMATION
  Report Type: Spontaneous
  Country: BR (occurrence: BR)
  Receive Date: 20130418
  Receipt Date: 20130418
  Transmission Date: 20140414
  Serious: Yes (Hospitalization)
  Sender: FDA-Public Use
  Company Number: BR-ASTRAZENECA-2013SE24517

PATIENT
  Age: 45 Year
  Sex: Female

DRUGS (2)
  1. CRESTOR [Suspect]
     Route: 048
  2. LOTAR [Concomitant]
     Indication: HYPERTENSION

REACTIONS (1)
  - Coronary artery occlusion [Recovered/Resolved]
